FAERS Safety Report 6380157-6 (Version None)
Quarter: 2009Q3

REPORT INFORMATION
  Report Type: 
  Country: None (occurrence: None)
  Receive Date: 20090929
  Receipt Date: 20090914
  Transmission Date: 20100115
  Serious: Yes (Other)
  Sender: FDA-Public Use
  Company Number: US-PFIZER INC-2009268462

PATIENT
  Age: 66 Year
  Sex: Male

DRUGS (4)
  1. XANAX [Suspect]
     Dosage: UNK
  2. CODEINE [Suspect]
     Dosage: UNK
  3. PERCOCET [Suspect]
     Dosage: UNK
  4. VICODIN [Suspect]
     Dosage: UNK

REACTIONS (1)
  - DRUG DIVERSION [None]
